FAERS Safety Report 6096923-0 (Version None)
Quarter: 2009Q1

REPORT INFORMATION
  Report Type: 
  Country: None (occurrence: None)
  Receive Date: 20090219
  Receipt Date: 20081106
  Transmission Date: 20090719
  Serious: No
  Sender: FDA-Public Use
  Company Number: WAES 0811USA00864

PATIENT
  Age: 67 Year
  Sex: Female

DRUGS (4)
  1. JANUVIA [Suspect]
     Indication: TYPE 2 DIABETES MELLITUS
     Dosage: 100 MG/DAILY/PO
     Route: 048
     Dates: start: 20080901, end: 20081105
  2. PREVACID [Concomitant]
  3. CORTICOSTEROIDS (UNSPECIFIED) [Concomitant]
  4. VITAMINS (UNSPECIFIED) [Concomitant]

REACTIONS (9)
  - BLOOD GLUCOSE INCREASED [None]
  - COUGH [None]
  - DRUG INEFFECTIVE [None]
  - HUNGER [None]
  - OROPHARYNGEAL PAIN [None]
  - POLLAKIURIA [None]
  - RASH PRURITIC [None]
  - THERAPEUTIC RESPONSE UNEXPECTED [None]
  - VOMITING [None]
